FAERS Safety Report 10108749 (Version 1)
Quarter: 2014Q2

REPORT INFORMATION
  Report Type: Spontaneous
  Country: US (occurrence: US)
  Receive Date: 20140425
  Receipt Date: 20140425
  Transmission Date: 20141212
  Serious: Yes (Other)
  Sender: FDA-Public Use
  Company Number: US-AMGEN-USASP2014029337

PATIENT
  Age: 52 Year
  Sex: Male

DRUGS (1)
  1. ENBREL [Suspect]
     Indication: ANKYLOSING SPONDYLITIS
     Dosage: 25 MG, 2 TIMES/WK
     Route: 058

REACTIONS (9)
  - Dizziness [Unknown]
  - Palpitations [Unknown]
  - Abdominal pain [Unknown]
  - Nocturia [Unknown]
  - Chills [Unknown]
  - Cold sweat [Unknown]
  - Nausea [Unknown]
  - Injection site swelling [Unknown]
  - Injection site pruritus [Unknown]
